FAERS Safety Report 12857634 (Version 5)
Quarter: 2016Q4

REPORT INFORMATION
  Report Type: Report from Study
  Country: JP (occurrence: JP)
  Receive Date: 20161018
  Receipt Date: 20161128
  Transmission Date: 20170207
  Serious: Yes (Death, Hospitalization)
  Sender: FDA-Public Use
  Company Number: JP-PFIZER INC-2016482619

PATIENT
  Age: 78 Year
  Sex: Female
  Weight: 80 kg

DRUGS (7)
  1. FOLIAMIN [Concomitant]
     Active Substance: FOLIC ACID
  2. RHEUMATREX [Suspect]
     Active Substance: METHOTREXATE SODIUM
     Indication: RHEUMATOID ARTHRITIS
     Dosage: 8-10 MG, WEEKLY, IN 2 DIVIDED DAYS
     Route: 048
     Dates: start: 201503, end: 20161012
  3. XELJANZ [Suspect]
     Active Substance: TOFACITINIB CITRATE
     Indication: RHEUMATOID ARTHRITIS
     Dosage: 5 MG, 2X/DAY
     Route: 048
     Dates: start: 20160802, end: 20161004
  4. CARDENALIN [Concomitant]
     Active Substance: DOXAZOSIN MESYLATE
  5. MOHRUS [Concomitant]
     Active Substance: KETOPROFEN
  6. PARIET [Concomitant]
     Active Substance: RABEPRAZOLE SODIUM
  7. MICAMLO [Concomitant]
     Active Substance: AMLODIPINE BESYLATE\TELMISARTAN

REACTIONS (6)
  - Infected neoplasm [Unknown]
  - Interstitial lung disease [Fatal]
  - Fatigue [Not Recovered/Not Resolved]
  - Emphysema [Fatal]
  - C-reactive protein increased [Not Recovered/Not Resolved]
  - Pulmonary alveolar haemorrhage [Fatal]

NARRATIVE: CASE EVENT DATE: 20160902
